FAERS Safety Report 7728736-5 (Version None)
Quarter: 2011Q3

REPORT INFORMATION
  Report Type: 
  Country: None (occurrence: None)
  Receive Date: 20110906
  Receipt Date: 20110826
  Transmission Date: 20111222
  Serious: Yes (Hospitalization)
  Sender: FDA-Public Use
  Company Number: JP-JNJFOC-20110900466

PATIENT

DRUGS (1)
  1. RISPERDAL [Suspect]
     Indication: DELIRIUM
     Dosage: 1 TO 2 MG
     Route: 048

REACTIONS (3)
  - HOSPITALISATION [None]
  - TREMOR [None]
  - FEELING COLD [None]
